FAERS Safety Report 8837316 (Version 1)
Quarter: 2012Q4

REPORT INFORMATION
  Report Type: 
  Country: US (occurrence: US)
  Receive Date: 20121011
  Receipt Date: 20121011
  Transmission Date: 20130627
  Serious: Yes (Other)
  Sender: FDA-Public Use
  Company Number: US-ROCHE-1130399

PATIENT
  Sex: Female
  Weight: 38.56 kg

DRUGS (3)
  1. PROTROPIN [Suspect]
     Indication: GROWTH HORMONE DEFICIENCY
     Route: 058
  2. PROTROPIN [Suspect]
     Dosage: dose increased
     Route: 058
     Dates: start: 20010427
  3. PROTROPIN [Suspect]
     Route: 058
     Dates: start: 19981007

REACTIONS (1)
  - Arrhythmia [Unknown]
